FAERS Safety Report 6522980-0 (Version None)
Quarter: 2009Q4

REPORT INFORMATION
  Report Type: 
  Country: None (occurrence: None)
  Receive Date: 20091230
  Receipt Date: 20091217
  Transmission Date: 20100525
  Serious: Yes (Congenital Anomaly)
  Sender: FDA-Public Use
  Company Number: GB-WATSON-2009-11011

PATIENT
  Age: 38 Week
  Sex: Female
  Weight: 2.5 kg

DRUGS (2)
  1. LAMOTRIGINE [Suspect]
     Indication: EPILEPSY
     Dosage: 125 MG, DAILY
     Route: 064
  2. TOPIRAMATE [Suspect]
     Indication: EPILEPSY
     Dosage: 175 MG, DAILY
     Route: 064

REACTIONS (1)
  - ANAL ATRESIA [None]
